FAERS Safety Report 10385603 (Version 1)
Quarter: 2014Q3

REPORT INFORMATION
  Report Type: Spontaneous
  Country: US (occurrence: US)
  Receive Date: 20140814
  Receipt Date: 20140814
  Transmission Date: 20150326
  Serious: Yes (Other)
  Sender: FDA-Public Use
  Company Number: US-ASTRAZENECA-2014SE57870

PATIENT
  Age: 44 Year
  Sex: Female

DRUGS (1)
  1. FASLODEX [Suspect]
     Active Substance: FULVESTRANT
     Indication: BREAST CANCER METASTATIC
     Dosage: UNKNOWN UNK
     Route: 030
     Dates: start: 2014

REACTIONS (1)
  - Muscle necrosis [Unknown]

NARRATIVE: CASE EVENT DATE: 2014
